FAERS Safety Report 5498144-9 (Version None)
Quarter: 2007Q4

REPORT INFORMATION
  Report Type: 
  Country: None (occurrence: None)
  Receive Date: 20071025
  Receipt Date: 20071023
  Transmission Date: 20080405
  Serious: Yes (Hospitalization)
  Sender: FDA-Public Use
  Company Number: BE-BOEHRINGER INGELHEIM PHARMACEUTICALS, INC.-2007-BL-00161BL

PATIENT
  Sex: Male

DRUGS (3)
  1. SPIRIVA [Suspect]
     Indication: RESPIRATORY FAILURE
     Route: 055
  2. HYTRIN [Concomitant]
     Indication: BENIGN PROSTATIC HYPERPLASIA
     Route: 048
  3. SERETIDE [Concomitant]
     Indication: RESPIRATORY FAILURE
     Route: 055

REACTIONS (2)
  - OVERDOSE [None]
  - URINARY RETENTION [None]
